FAERS Safety Report 25628168 (Version 4)
Quarter: 2025Q3

REPORT INFORMATION
  Report Type: Spontaneous
  Country: CO (occurrence: CO)
  Receive Date: 20250731
  Receipt Date: 20250918
  Transmission Date: 20251020
  Serious: No
  Sender: PFIZER
  Company Number: CO-PFIZER INC-PV202500091562

PATIENT
  Sex: Male

DRUGS (1)
  1. GENOTROPIN [Suspect]
     Active Substance: SOMATROPIN
     Dosage: 1.2 MG, DAILY

REACTIONS (5)
  - Device breakage [Unknown]
  - Device leakage [Unknown]
  - Device use error [Unknown]
  - Device defective [Unknown]
  - Drug dose omission by device [Unknown]
